FAERS Safety Report 11227597 (Version 2)
Quarter: 2016Q1

REPORT INFORMATION
  Report Type: Spontaneous
  Country: CA (occurrence: CA)
  Receive Date: 20150630
  Receipt Date: 20160317
  Transmission Date: 20160525
  Serious: Yes (Hospitalization)
  Sender: FDA-Public Use
  Company Number: CA-ROCHE-1601008

PATIENT
  Age: 36 Year
  Sex: Female

DRUGS (11)
  1. GUAIFENESIN. [Concomitant]
     Active Substance: GUAIFENESIN
  2. XOLAIR [Suspect]
     Active Substance: OMALIZUMAB
     Indication: ASTHMA
     Route: 058
     Dates: start: 20130930
  3. ALVESCO [Concomitant]
     Active Substance: CICLESONIDE
  4. HEPARIN [Concomitant]
     Active Substance: HEPARIN SODIUM
  5. AVAMYS [Concomitant]
     Active Substance: FLUTICASONE FUROATE
  6. SINGULAIR [Concomitant]
     Active Substance: MONTELUKAST SODIUM
  7. ADVAIR HFA [Concomitant]
     Active Substance: FLUTICASONE PROPIONATE\SALMETEROL XINAFOATE
  8. ZENHALE [Concomitant]
     Active Substance: FORMOTEROL FUMARATE\MOMETASONE FUROATE
  9. VENTOLIN [Concomitant]
     Active Substance: ALBUTEROL SULFATE
  10. ZOLOFT [Concomitant]
     Active Substance: SERTRALINE HYDROCHLORIDE
  11. XOLAIR [Suspect]
     Active Substance: OMALIZUMAB
     Route: 058
     Dates: start: 20160211

REACTIONS (4)
  - Maternal exposure during pregnancy [Unknown]
  - Asthma [Unknown]
  - Oropharyngeal pain [Recovering/Resolving]
  - Migraine [Recovering/Resolving]

NARRATIVE: CASE EVENT DATE: 20130930
